FAERS Safety Report 19455938 (Version 2)
Quarter: 2021Q2

REPORT INFORMATION
  Report Type: Report from Study
  Country: AR (occurrence: AR)
  Receive Date: 20210624
  Receipt Date: 20210630
  Transmission Date: 20210717
  Serious: Yes (Death, Life-Threatening, Other)
  Sender: FDA-Public Use
  Company Number: AR-GILEAD-2021-0537078

PATIENT
  Age: 58 Year
  Sex: Male

DRUGS (23)
  1. CLONAZEPAM. [Concomitant]
     Active Substance: CLONAZEPAM
  2. NOREPINEPHRINE BITARTRATE. [Concomitant]
     Active Substance: NOREPINEPHRINE BITARTRATE
  3. HEPARIN [Concomitant]
     Active Substance: HEPARIN SODIUM
  4. PANCURONIUM [Concomitant]
     Active Substance: PANCURONIUM
  5. MIDAZOLAM. [Concomitant]
     Active Substance: MIDAZOLAM
  6. REMIFENTANIL [Concomitant]
     Active Substance: REMIFENTANIL
  7. AMIKACIN. [Concomitant]
     Active Substance: AMIKACIN
  8. CLARITHROMYCIN. [Concomitant]
     Active Substance: CLARITHROMYCIN
  9. REMDESIVIR. [Suspect]
     Active Substance: REMDESIVIR
     Indication: COVID-19
     Dosage: UNK, QD
     Route: 042
     Dates: start: 20210525
  10. DEXAMETHASONE. [Concomitant]
     Active Substance: DEXAMETHASONE
  11. DIAZEPAM. [Concomitant]
     Active Substance: DIAZEPAM
  12. PLACEBO [Suspect]
     Active Substance: UNSPECIFIED INGREDIENT
     Indication: COVID-19
     Dosage: UNK UNK, ONCE
     Route: 042
     Dates: start: 20210525
  13. IMIPENEM [Concomitant]
     Active Substance: IMIPENEM
  14. MORPHINE [Concomitant]
     Active Substance: MORPHINE
  15. OXYGEN. [Concomitant]
     Active Substance: OXYGEN
  16. RANITIDINE. [Concomitant]
     Active Substance: RANITIDINE
  17. VASOPRESSIN. [Concomitant]
     Active Substance: VASOPRESSIN
  18. BLINDED ABATACEPT [Suspect]
     Active Substance: ABATACEPT
     Indication: COVID-19
     Dosage: UNK UNK, ONCE
     Route: 042
     Dates: start: 20210525
  19. AMPICILLIN SULBACTAM [Concomitant]
     Active Substance: AMPICILLIN SODIUM\SULBACTAM SODIUM
  20. COLISTIN [Concomitant]
     Active Substance: COLISTIN
  21. LOSARTAN. [Concomitant]
     Active Substance: LOSARTAN
  22. SODIUM CHLORIDE. [Concomitant]
     Active Substance: SODIUM CHLORIDE
  23. VANCOMYCIN [Concomitant]
     Active Substance: VANCOMYCIN

REACTIONS (1)
  - Pneumonia [Fatal]

NARRATIVE: CASE EVENT DATE: 20210607
